FAERS Safety Report 23978709 (Version 1)
Quarter: 2024Q2

REPORT INFORMATION
  Report Type: Report from Study
  Country: BR (occurrence: BR)
  Receive Date: 20240614
  Receipt Date: 20240614
  Transmission Date: 20240715
  Serious: Yes (Hospitalization)
  Sender: FDA-Public Use
  Company Number: BR-ABBVIE-5787490

PATIENT
  Age: 67 Year
  Sex: Female
  Weight: 61 kg

DRUGS (11)
  1. SKYRIZI [Suspect]
     Active Substance: RISANKIZUMAB-RZAA
     Indication: Psoriasis
     Dosage: FORM STRENGTH: 75 MILLIGRAM
     Route: 058
     Dates: start: 20210202
  2. SKYRIZI [Suspect]
     Active Substance: RISANKIZUMAB-RZAA
     Dosage: 75 MG / 0,83 ML, FORM STRENGTH: 75 MILLIGRAM
     Route: 058
     Dates: start: 202401
  3. LOSARTAN [Concomitant]
     Active Substance: LOSARTAN
     Indication: Hypertension
     Dosage: 100 MILLIGRAM, FORM STRENGTH: 50 MILLIGRAM
     Route: 048
     Dates: start: 202401
  4. CYANOCOBALAMIN\PYRIDOXINE HYDROCHLORIDE\THIAMINE [Concomitant]
     Active Substance: CYANOCOBALAMIN\PYRIDOXINE HYDROCHLORIDE\THIAMINE
     Indication: Product used for unknown indication
  5. IRON POLYMALTOSE [Concomitant]
     Active Substance: IRON POLYMALTOSE
     Indication: Anaemia
     Dosage: FREQUENCY TEXT: EVERY OTHER DAY, IRON III HYDROXIDE
     Route: 042
     Dates: start: 20240115, end: 20240304
  6. MACRODANTIN [Concomitant]
     Active Substance: NITROFURANTOIN
     Indication: Product used for unknown indication
     Dosage: FORM STRENGTH: 100 MILLIGRAM
     Route: 048
     Dates: start: 20240115, end: 20240212
  7. POTASSIUM [Suspect]
     Active Substance: POTASSIUM
     Indication: Anaemia
     Route: 042
  8. ANTIFLU [Concomitant]
     Active Substance: ACETAMINOPHEN\CHLORPHENIRAMINE MALEATE\PHENYLEPHRINE HYDROCHLORIDE
     Indication: Product used for unknown indication
  9. TRAMADOL [Concomitant]
     Active Substance: TRAMADOL\TRAMADOL HYDROCHLORIDE
     Indication: Pain
     Dosage: FREQUENCY TEXT: WHEN IN PAIN, STOP DATE TEXT: 14 OR 16 OF JAN2024
     Route: 048
     Dates: start: 20240512, end: 20240516
  10. FOLIC ACID [Concomitant]
     Active Substance: FOLIC ACID
     Indication: Anaemia
     Dosage: FORM STRENGTH: 5 MILLIGRAM
     Route: 048
     Dates: start: 20240115
  11. DIPYRONE [Concomitant]
     Active Substance: DIPYRONE
     Indication: Pain
     Dosage: (25 DROPS OR 1 TABLET), FREQUENCY TEXT: WHEN IN PAIN
     Route: 048
     Dates: start: 20240512, end: 20240601

REACTIONS (23)
  - Pneumonia [Recovered/Resolved]
  - Peripheral swelling [Recovered/Resolved]
  - Dizziness [Unknown]
  - Dyspnoea [Recovered/Resolved]
  - Anaemia [Recovering/Resolving]
  - Oropharyngeal pain [Recovered/Resolved]
  - Anxiety [Unknown]
  - Weight decreased [Recovered/Resolved]
  - Skin exfoliation [Recovered/Resolved]
  - Ankle fracture [Recovered/Resolved]
  - Foot fracture [Recovered/Resolved]
  - Weight decreased [Recovered/Resolved]
  - Upper limb fracture [Recovering/Resolving]
  - Skin discolouration [Recovered/Resolved]
  - Gait disturbance [Unknown]
  - Fatigue [Unknown]
  - Fall [Unknown]
  - Skin wrinkling [Unknown]
  - Infusion site pain [Unknown]
  - Hypertension [Recovering/Resolving]
  - Pain [Unknown]
  - Influenza [Recovered/Resolved]
  - Influenza [Unknown]

NARRATIVE: CASE EVENT DATE: 20231001
